FAERS Safety Report 4777626-9 (Version None)
Quarter: 2005Q3

REPORT INFORMATION
  Report Type: 
  Country: None (occurrence: None)
  Receive Date: 20050921
  Receipt Date: 20050902
  Transmission Date: 20060218
  Serious: Yes (Other)
  Sender: FDA-Public Use
  Company Number: USA0509107204

PATIENT
  Age: 48 Year
  Sex: Female

DRUGS (3)
  1. CYMBALTA [Suspect]
     Indication: ANXIETY
     Dosage: 60 MG/1 DAY
     Dates: start: 20050501
  2. NEXIUM [Concomitant]
  3. CLARINEX [Concomitant]

REACTIONS (7)
  - ANXIETY [None]
  - DYSPHAGIA [None]
  - HEART RATE INCREASED [None]
  - INSOMNIA [None]
  - LUNG NEOPLASM MALIGNANT [None]
  - OESOPHAGEAL PAIN [None]
  - RADIATION INJURY [None]
